FAERS Safety Report 9980343 (Version 1)
Quarter: 2014Q1

REPORT INFORMATION
  Report Type: Spontaneous
  Country: US (occurrence: None)
  Receive Date: 20140305
  Receipt Date: 20140305
  Transmission Date: 20141002
  Serious: Yes (Hospitalization)
  Sender: FDA-Public Use
  Company Number: None

PATIENT
  Age: 52 Year
  Sex: Female

DRUGS (13)
  1. WARFARIN [Suspect]
     Indication: ATRIAL FIBRILLATION
     Route: 048
  2. ASPIRIN-LOW (ASPIRIN) [Concomitant]
  3. CLEOCIN (CLINDAMYCIN HCL) [Concomitant]
  4. COUMADIN (WARFARIN) [Concomitant]
  5. ENALAPRIL MALEATE [Concomitant]
  6. GLIPIZIDE [Concomitant]
  7. LANTUS (INSULIN GLARGINE) [Concomitant]
  8. LEXAPRO (ESCITALOPRAM) [Concomitant]
  9. LUMIGAN (BIMATOPROST) [Concomitant]
  10. METFORMIN [Concomitant]
  11. METHIMAZOLE [Concomitant]
  12. METOPROLOL TARTRATE [Concomitant]
  13. SIMVASTATIN [Concomitant]

REACTIONS (3)
  - Gastrointestinal haemorrhage [None]
  - Haematemesis [None]
  - International normalised ratio increased [None]
